FAERS Safety Report 4510185-4 (Version None)
Quarter: 2004Q4

REPORT INFORMATION
  Report Type: 
  Country: None (occurrence: None)
  Receive Date: 20041124
  Receipt Date: 20041111
  Transmission Date: 20050328
  Serious: Yes (Other)
  Sender: FDA-Public Use
  Company Number: US-MERCK-0411DEU00421

PATIENT
  Age: 59 Year
  Sex: Female
  Weight: 103 kg

DRUGS (12)
  1. FOSAMAX [Suspect]
     Indication: OSTEOPOROSIS
     Route: 048
  2. BETAHISTINE MESYLATE [Suspect]
     Indication: TINNITUS
     Route: 065
  3. BISOPROLOL FUMARATE AND HYDROCHLOROTHIAZIDE [Suspect]
     Indication: HYPERTENSION
     Route: 065
  4. CALCIUM CARBONATE [Suspect]
     Route: 065
  5. DICLOFENAC SODIUM [Suspect]
     Indication: RHEUMATOID ARTHRITIS
     Route: 065
     Dates: end: 20040720
  6. DICLOFENAC SODIUM [Suspect]
     Route: 065
     Dates: start: 20040101
  7. ETANERCEPT [Suspect]
     Indication: ANKYLOSING SPONDYLITIS
     Route: 058
     Dates: start: 20020401
  8. FELODIPINE [Suspect]
     Indication: HYPERTENSION
     Route: 065
  9. METHOTREXATE [Suspect]
     Route: 065
     Dates: end: 20040701
  10. OMEPRAZOLE [Suspect]
     Route: 065
  11. PREDNISOLONE [Suspect]
     Indication: RHEUMATOID ARTHRITIS
     Route: 065
  12. TORSEMIDE [Suspect]
     Indication: HYPERTENSION
     Route: 065

REACTIONS (4)
  - DRUG INTERACTION [None]
  - GAMMA-GLUTAMYLTRANSFERASE INCREASED [None]
  - HEPATIC ENZYME INCREASED [None]
  - RHEUMATOID ARTHRITIS [None]
